FAERS Safety Report 6492262-4 (Version None)
Quarter: 2009Q4

REPORT INFORMATION
  Report Type: 
  Country: None (occurrence: None)
  Receive Date: 20091214
  Receipt Date: 20091201
  Transmission Date: 20100525
  Serious: Yes (Hospitalization, Other)
  Sender: FDA-Public Use
  Company Number: PHEH2006US03112

PATIENT
  Sex: Female
  Weight: 65.759 kg

DRUGS (21)
  1. ESTRADERM [Suspect]
     Indication: MENOPAUSAL SYMPTOMS
     Dosage: UNK, UNK
     Route: 062
     Dates: start: 19870721, end: 19880331
  2. PREMARIN [Suspect]
     Indication: MENOPAUSAL SYMPTOMS
     Dosage: 0.625 MG, UNK
     Dates: start: 19820811
  3. PREMARIN [Suspect]
     Dosage: UNK
     Dates: start: 19880331, end: 19890719
  4. PREMARIN [Suspect]
     Dosage: UNK
     Dates: start: 19800101
  5. PROVERA [Suspect]
     Indication: MENOPAUSAL SYMPTOMS
     Dosage: 70 MG, UNK
     Dates: start: 19800709
  6. PROVERA [Suspect]
     Dosage: 10 MG, UNK
     Dates: start: 19850408, end: 19890719
  7. SYNTHROID [Concomitant]
  8. PROGESTERONE [Concomitant]
     Indication: HOT FLUSH
     Dates: start: 19870721
  9. FOSAMAX [Concomitant]
  10. ATORVASTATIN CALCIUM [Concomitant]
  11. LANSOPRAZOLE [Concomitant]
  12. NABUMETONE [Concomitant]
  13. ASPIRIN [Concomitant]
  14. FENOPROFEN CALCIUM [Concomitant]
  15. LOPRESSOR [Concomitant]
  16. GLUCOSAMINE [Concomitant]
  17. MULTI-VITAMINS [Concomitant]
  18. CALCIUM [Concomitant]
  19. PRILOSEC [Concomitant]
  20. PREVACID [Concomitant]
  21. VALTREX [Concomitant]

REACTIONS (65)
  - ABDOMINAL PAIN LOWER [None]
  - ADENOMYOSIS [None]
  - ADNEXA UTERI MASS [None]
  - ANGIOGRAM PULMONARY [None]
  - ARTERIOGRAM CORONARY ABNORMAL [None]
  - ARTERIOSCLEROSIS CORONARY ARTERY [None]
  - ATRIAL FIBRILLATION [None]
  - ATROPHIC VULVOVAGINITIS [None]
  - BACTERIAL TEST POSITIVE [None]
  - BASAL CELL CARCINOMA [None]
  - BIOPSY BREAST ABNORMAL [None]
  - BLOOD CHOLESTEROL INCREASED [None]
  - BONE DENSITY DECREASED [None]
  - BREAST CANCER IN SITU [None]
  - BREAST MASS [None]
  - CANDIDIASIS [None]
  - CARDIOMYOPATHY [None]
  - CATHETERISATION CARDIAC ABNORMAL [None]
  - CERVICITIS [None]
  - CHEST DISCOMFORT [None]
  - CHEST PAIN [None]
  - CHOLECYSTECTOMY [None]
  - CHOLELITHIASIS [None]
  - DYSPAREUNIA [None]
  - ENDOMETRIAL DISORDER [None]
  - FATIGUE [None]
  - FIBROCYSTIC BREAST DISEASE [None]
  - HYDROMETRA [None]
  - HYPERTENSION [None]
  - HYSTERECTOMY [None]
  - INFLUENZA [None]
  - INTERVERTEBRAL DISC DEGENERATION [None]
  - KNEE ARTHROPLASTY [None]
  - LEFT VENTRICULAR DYSFUNCTION [None]
  - LEIOMYOMA [None]
  - LYMPHADENOPATHY [None]
  - MAMMOGRAM ABNORMAL [None]
  - MASS [None]
  - MASTECTOMY [None]
  - MITRAL VALVE INCOMPETENCE [None]
  - MYOCARDIAL INFARCTION [None]
  - NECK PAIN [None]
  - NUCLEAR MAGNETIC RESONANCE IMAGING ABNORMAL [None]
  - OESTROGEN RECEPTOR ASSAY POSITIVE [None]
  - OESTROGENIC EFFECT [None]
  - OOPHORECTOMY [None]
  - OVARIAN ATROPHY [None]
  - OVARIAN CYST [None]
  - PALPITATIONS [None]
  - PELVIC PAIN [None]
  - PNEUMONIA [None]
  - PROGESTERONE RECEPTOR ASSAY POSITIVE [None]
  - RADIOISOTOPE SCAN [None]
  - RADIOTHERAPY [None]
  - SMEAR VAGINAL ABNORMAL [None]
  - TRANSFUSION [None]
  - ULTRASOUND BILIARY TRACT [None]
  - ULTRASOUND BREAST ABNORMAL [None]
  - ULTRASOUND UTERUS ABNORMAL [None]
  - VAGINAL CYST [None]
  - VAGINAL HAEMORRHAGE [None]
  - VAGINITIS GARDNERELLA [None]
  - VENTRICULAR TACHYCARDIA [None]
  - VULVITIS [None]
  - VULVOVAGINAL DRYNESS [None]
